FAERS Safety Report 16902357 (Version 5)
Quarter: 2022Q3

REPORT INFORMATION
  Report Type: Report from Study
  Country: JP (occurrence: JP)
  Receive Date: 20191010
  Receipt Date: 20220713
  Transmission Date: 20221027
  Serious: Yes (Other)
  Sender: FDA-Public Use
  Company Number: JP-GSKJP-JP2019JPN181730AA

PATIENT

DRUGS (18)
  1. MEPOLIZUMAB [Suspect]
     Active Substance: MEPOLIZUMAB
     Indication: Eosinophilic granulomatosis with polyangiitis
     Dosage: 300 MG
     Dates: start: 20190919, end: 20190919
  2. PREDONINE [Concomitant]
     Active Substance: PREDNISOLONE
     Indication: Eosinophilic granulomatosis with polyangiitis
     Dosage: 17.5 MG, 1D
     Dates: end: 20190822
  3. PREDONINE [Concomitant]
     Active Substance: PREDNISOLONE
     Dosage: 15 MG, 1D
     Dates: start: 20190823, end: 20191023
  4. PREDONINE [Concomitant]
     Active Substance: PREDNISOLONE
     Dosage: 12.5 MG, 1D
     Dates: start: 20191024, end: 20191106
  5. PREDONINE [Concomitant]
     Active Substance: PREDNISOLONE
     Dosage: 12.5 MG, 1D
     Dates: start: 20191107
  6. SYMBICORT [Concomitant]
     Active Substance: BUDESONIDE\FORMOTEROL FUMARATE DIHYDRATE
     Indication: Asthma
     Dosage: 640 ?G, 1D
     Route: 055
  7. VENILON [Concomitant]
     Active Substance: HUMAN IMMUNOGLOBULIN G
     Indication: Eosinophilic granulomatosis with polyangiitis
     Dosage: 15 G, 1D
     Dates: start: 20191118, end: 20191122
  8. PRANLUKAST CAPSULE [Concomitant]
  9. VONOPRAZAN FUMARATE [Concomitant]
     Active Substance: VONOPRAZAN FUMARATE
     Dosage: 20 MG
  10. SULFAMETHOXAZOLE\TRIMETHOPRIM [Concomitant]
     Active Substance: SULFAMETHOXAZOLE\TRIMETHOPRIM
     Dosage: 1 DF
  11. RUPAFIN [Concomitant]
     Active Substance: RUPATADINE FUMARATE
     Dosage: 10 MG
  12. MOSAPRIDE CITRATE DIHYDRATE [Concomitant]
     Active Substance: MOSAPRIDE CITRATE DIHYDRATE
     Dosage: 5 MG
  13. ACOTIAMIDE HYDROCHLORIDE [Concomitant]
     Active Substance: ACOTIAMIDE HYDROCHLORIDE
     Dosage: 100 MG
  14. CINAL [Concomitant]
     Dosage: 1 DF
  15. EXCELASE (JAPAN) [Concomitant]
     Dosage: 1 DF
  16. METHYLCOBALAMIN [Concomitant]
     Active Substance: METHYLCOBALAMIN
     Dosage: 1 MG
  17. ETHINYL ESTRADIOL\NORETHINDRONE [Concomitant]
     Active Substance: ETHINYL ESTRADIOL\NORETHINDRONE
     Dosage: 1 DF
  18. LOPERAMIDE HYDROCHLORIDE [Concomitant]
     Active Substance: LOPERAMIDE HYDROCHLORIDE
     Dosage: 1 MG

REACTIONS (8)
  - Anaphylactoid reaction [Recovered/Resolved]
  - Respiratory distress [Recovered/Resolved]
  - Blood pressure decreased [Recovered/Resolved]
  - Tachycardia [Recovered/Resolved]
  - Wheezing [Recovered/Resolved]
  - Stridor [Recovered/Resolved]
  - Tachypnoea [Recovered/Resolved]
  - Use of accessory respiratory muscles [Recovered/Resolved]

NARRATIVE: CASE EVENT DATE: 20190919
